FAERS Safety Report 5890492-3 (Version None)
Quarter: 2008Q3

REPORT INFORMATION
  Report Type: 
  Country: None (occurrence: None)
  Receive Date: 20080922
  Receipt Date: 20080917
  Transmission Date: 20090109
  Serious: Yes (Life-Threatening, Other)
  Sender: FDA-Public Use
  Company Number: GB-WYE-G01988908

PATIENT
  Sex: Female

DRUGS (9)
  1. TACROLIMUS [Suspect]
     Dosage: LEVEL BETWEEN 5-10 MG/ML
     Dates: start: 20020914
  2. ASPIRIN [Concomitant]
  3. MYFORTIC [Suspect]
  4. RANITIDINE [Concomitant]
  5. PREDNISOLONE [Suspect]
  6. FERROUS SULFATE TAB [Concomitant]
  7. LISINOPRIL [Concomitant]
  8. ALFACALCIDOL [Concomitant]
  9. EZETIMIBE [Concomitant]

REACTIONS (1)
  - KAPOSI'S SARCOMA [None]
